FAERS Safety Report 15746056 (Version 2)
Quarter: 2019Q2

REPORT INFORMATION
  Report Type: Spontaneous
  Country: US (occurrence: US)
  Receive Date: 20181220
  Receipt Date: 20190521
  Transmission Date: 20190711
  Serious: Yes (Death, Other)
  Sender: FDA-Public Use
  Company Number: US-PFIZER INC-2018521567

PATIENT
  Age: 82 Year
  Sex: Female

DRUGS (15)
  1. PROTONIX [Suspect]
     Active Substance: PANTOPRAZOLE SODIUM
     Indication: GASTROOESOPHAGEAL REFLUX DISEASE
     Dosage: UNK
     Dates: start: 2007, end: 2009
  2. MAXZIDE-25 [Concomitant]
     Active Substance: HYDROCHLOROTHIAZIDE\TRIAMTERENE
     Indication: DIURETIC THERAPY
     Dosage: UNK
     Dates: start: 200501, end: 201002
  3. DURADEX [Concomitant]
     Indication: NASOPHARYNGITIS
     Dosage: UNK
     Dates: start: 200511
  4. PROTONIX [Suspect]
     Active Substance: PANTOPRAZOLE SODIUM
     Dosage: 40 MG, DAILY
     Dates: start: 2007, end: 2008
  5. PANTOPRAZOLE [Suspect]
     Active Substance: PANTOPRAZOLE
     Indication: GASTROOESOPHAGEAL REFLUX DISEASE
     Dosage: 40 MG, DAILY
     Dates: start: 2008, end: 2010
  6. TAMOXIFEN [Concomitant]
     Active Substance: TAMOXIFEN
     Indication: HORMONE THERAPY
     Dosage: UNK
     Dates: start: 200501, end: 200705
  7. ALLEGRA [Concomitant]
     Active Substance: FEXOFENADINE HYDROCHLORIDE
     Indication: ANTIALLERGIC THERAPY
     Dosage: UNK
     Dates: start: 200501, end: 200511
  8. RANITIDINE. [Concomitant]
     Active Substance: RANITIDINE
     Dosage: UNK
     Dates: start: 201209, end: 201210
  9. BEXTRA [Concomitant]
     Active Substance: VALDECOXIB
     Dosage: UNK
     Dates: start: 200409, end: 200503
  10. MOBIC [Concomitant]
     Active Substance: MELOXICAM
     Dosage: UNK
     Dates: start: 200504, end: 200710
  11. LISINOPRIL. [Concomitant]
     Active Substance: LISINOPRIL
     Indication: BLOOD PRESSURE ABNORMAL
     Dosage: UNK
     Dates: start: 201309, end: 201310
  12. METRONIDAZOLE. [Concomitant]
     Active Substance: METRONIDAZOLE
     Indication: ANTIBIOTIC THERAPY
     Dosage: UNK
     Dates: start: 200704
  13. FACTIVE [Concomitant]
     Active Substance: GEMIFLOXACIN MESYLATE
     Indication: ANTIBIOTIC THERAPY
     Dosage: UNK
     Dates: start: 200703
  14. TOPROL XL [Concomitant]
     Active Substance: METOPROLOL SUCCINATE
     Indication: BLOOD PRESSURE ABNORMAL
     Dosage: UNK
     Dates: start: 200501, end: 201010
  15. AVAPRO [Concomitant]
     Active Substance: IRBESARTAN
     Indication: BLOOD PRESSURE ABNORMAL
     Dosage: UNK
     Dates: start: 200501, end: 201201

REACTIONS (3)
  - Chronic kidney disease [Unknown]
  - Death [Fatal]
  - End stage renal disease [Unknown]

NARRATIVE: CASE EVENT DATE: 20131018
